FAERS Safety Report 15878984 (Version 1)
Quarter: 2019Q1

REPORT INFORMATION
  Report Type: Spontaneous
  Country: US (occurrence: US)
  Receive Date: 20190103
  Receipt Date: 20190103
  Transmission Date: 20190417
  Serious: Yes (Hospitalization)
  Sender: FDA-Public Use
  Company Number: None

PATIENT
  Age: 46 Year
  Sex: Female
  Weight: 71.7 kg

DRUGS (3)
  1. DEXAMETHASONE. [Suspect]
     Active Substance: DEXAMETHASONE
     Dates: end: 20180930
  2. DAUNORUBICIN (82151) [Suspect]
     Active Substance: DAUNORUBICIN
     Dates: end: 20181001
  3. VINCRISTINE SULFATE. [Concomitant]
     Active Substance: VINCRISTINE SULFATE
     Dates: end: 20181001

REACTIONS (7)
  - Constipation [None]
  - Impaired gastric emptying [None]
  - Hepatic steatosis [None]
  - Vomiting [None]
  - Nausea [None]
  - Transaminases increased [None]
  - Abdominal pain [None]

NARRATIVE: CASE EVENT DATE: 20181008
